FAERS Safety Report 10059311 (Version 1)
Quarter: 2014Q2

REPORT INFORMATION
  Report Type: Spontaneous
  Country: ID (occurrence: ID)
  Receive Date: 20140404
  Receipt Date: 20140404
  Transmission Date: 20141212
  Serious: Yes (Other)
  Sender: FDA-Public Use
  Company Number: ID-JNJFOC-20140401693

PATIENT
  Sex: Female
  Weight: 50 kg

DRUGS (2)
  1. REMICADE [Suspect]
     Indication: PSORIATIC ARTHROPATHY
     Dosage: 2 VIALS; 1ST INFUSION
     Route: 042
     Dates: start: 201309
  2. REMICADE [Suspect]
     Indication: PSORIATIC ARTHROPATHY
     Dosage: 2 VIALS; 2ND INFUSION
     Route: 042
     Dates: start: 201401

REACTIONS (2)
  - Acquired immunodeficiency syndrome [Unknown]
  - Exposure during pregnancy [Unknown]
